FAERS Safety Report 17375220 (Version 1)
Quarter: 2020Q1

REPORT INFORMATION
  Report Type: Spontaneous
  Country: ES (occurrence: ES)
  Receive Date: 20200206
  Receipt Date: 20200206
  Transmission Date: 20200409
  Serious: Yes (Death, Hospitalization, Other)
  Sender: FDA-Public Use
  Company Number: ES-TEVA-2020-ES-1181257

PATIENT
  Age: 90 Year
  Sex: Female

DRUGS (11)
  1. METAMIZOLE [Concomitant]
     Active Substance: METAMIZOLE
  2. SPIRONOLACTONE. [Concomitant]
     Active Substance: SPIRONOLACTONE
  3. FUROSEMIDE. [Concomitant]
     Active Substance: FUROSEMIDE
  4. ACENOCOUMAROL [Concomitant]
     Active Substance: ACENOCOUMAROL
  5. PARACETAMOL [Concomitant]
     Active Substance: ACETAMINOPHEN
  6. DEXAMETHASONE. [Concomitant]
     Active Substance: DEXAMETHASONE
  7. LEVETIRACETAM. [Concomitant]
     Active Substance: LEVETIRACETAM
  8. AMOXICILLIN. [Suspect]
     Active Substance: AMOXICILLIN
     Indication: URINARY TRACT INFECTION
     Dosage: 875/125 MG EVERY 8 H)
     Route: 065
  9. LACOSAMIDE. [Concomitant]
     Active Substance: LACOSAMIDE
  10. OMEPRAZOLE. [Concomitant]
     Active Substance: OMEPRAZOLE
  11. OMEPRAZOLE. [Concomitant]
     Active Substance: OMEPRAZOLE

REACTIONS (9)
  - Renal failure [Fatal]
  - Acute hepatic failure [Fatal]
  - Neutrophilia [Fatal]
  - Jaundice [Fatal]
  - Hepatitis [Fatal]
  - Altered state of consciousness [Fatal]
  - Abdominal pain upper [Fatal]
  - Leukocytosis [Fatal]
  - Pneumonia [Fatal]
